FAERS Safety Report 6056562-4 (Version None)
Quarter: 2009Q1

REPORT INFORMATION
  Report Type: 
  Country: None (occurrence: None)
  Receive Date: 20090126
  Receipt Date: 20090126
  Transmission Date: 20090719
  Serious: Yes (Other)
  Sender: FDA-Public Use
  Company Number: None

PATIENT
  Sex: Male
  Weight: 70.7611 kg

DRUGS (1)
  1. BENICAR [Suspect]
     Indication: BLOOD PRESSURE
     Dosage: 1 PILL
     Dates: start: 20090101

REACTIONS (6)
  - DYSPHONIA [None]
  - DYSPNOEA [None]
  - IRRITABILITY [None]
  - POOR QUALITY SLEEP [None]
  - PRURITUS [None]
  - RASH [None]
